FAERS Safety Report 9722867 (Version 1)
Quarter: 2013Q4

REPORT INFORMATION
  Report Type: Spontaneous
  Country: US (occurrence: None)
  Receive Date: 20131127
  Receipt Date: 20131127
  Transmission Date: 20140711
  Serious: No
  Sender: FDA-Public Use
  Company Number: None

PATIENT
  Age: 59 Year
  Sex: Female

DRUGS (5)
  1. LETAIRIS [Suspect]
     Dosage: 1 TABLET, PO, DAILY
     Route: 048
     Dates: start: 20131017
  2. FUROSEMIDE [Concomitant]
  3. SILDENAFIL [Concomitant]
  4. POTASSIUM CHLORIDE [Concomitant]
  5. ZAIDTOR [Concomitant]

REACTIONS (5)
  - Oedema peripheral [None]
  - Swelling face [None]
  - Flushing [None]
  - Weight increased [None]
  - Weight decreased [None]
